FAERS Safety Report 8492991-7 (Version None)
Quarter: 2012Q3

REPORT INFORMATION
  Report Type: 
  Country: None (occurrence: None)
  Receive Date: 20120706
  Receipt Date: 20120627
  Transmission Date: 20120928
  Serious: Yes (Hospitalization)
  Sender: FDA-Public Use
  Company Number: US-JNJFOC-20120614095

PATIENT
  Sex: Female
  Weight: 52.16 kg

DRUGS (1)
  1. RISPERDAL [Suspect]
     Indication: PRODUCT USED FOR UNKNOWN INDICATION
     Route: 048
     Dates: start: 20120101

REACTIONS (4)
  - HYPOKINESIA [None]
  - ABASIA [None]
  - WEIGHT DECREASED [None]
  - DYSSTASIA [None]
